FAERS Safety Report 5419965-4 (Version None)
Quarter: 2007Q3

REPORT INFORMATION
  Report Type: 
  Country: None (occurrence: None)
  Receive Date: 20070718
  Receipt Date: 20061023
  Transmission Date: 20080115
  Serious: Yes (Hospitalization, Other)
  Sender: FDA-Public Use
  Company Number: 2006105594

PATIENT
  Age: 72 Year
  Sex: Female
  Weight: 78.4723 kg

DRUGS (1)
  1. CELEBREX [Suspect]
     Indication: BACK PAIN
     Dosage: 200 MG
     Dates: start: 20030502

REACTIONS (1)
  - CEREBROVASCULAR ACCIDENT [None]
